FAERS Safety Report 10096758 (Version 1)
Quarter: 2014Q2

REPORT INFORMATION
  Report Type: Spontaneous
  Country: NL (occurrence: NL)
  Receive Date: 20140422
  Receipt Date: 20140422
  Transmission Date: 20141212
  Serious: Yes (Death, Other)
  Sender: FDA-Public Use
  Company Number: PHHY2014NL044966

PATIENT
  Age: 56 Year
  Sex: Male

DRUGS (3)
  1. PREDNISOLONE [Suspect]
     Indication: IMMUNOSUPPRESSION
  2. TACROLIMUS [Suspect]
     Indication: IMMUNOSUPPRESSION
  3. MYCOPHENOLATE MOFETIL [Suspect]
     Indication: IMMUNOSUPPRESSION

REACTIONS (14)
  - Transitional cell carcinoma [Fatal]
  - Malignant neoplasm progression [Fatal]
  - Metastases to retroperitoneum [Fatal]
  - Metastases to peritoneum [Fatal]
  - Metastases to large intestine [Fatal]
  - Metastases to small intestine [Fatal]
  - Ureteric stenosis [Unknown]
  - Hydronephrosis [Unknown]
  - BK virus infection [Unknown]
  - Pyrexia [Unknown]
  - Pain [Unknown]
  - Haematuria [Unknown]
  - Escherichia test positive [Unknown]
  - Viral load increased [Unknown]
